FAERS Safety Report 14990806 (Version 1)
Quarter: 2018Q2

REPORT INFORMATION
  Report Type: Spontaneous
  Country: FR (occurrence: FR)
  Receive Date: 20180608
  Receipt Date: 20180608
  Transmission Date: 20180711
  Serious: Yes (Hospitalization)
  Sender: FDA-Public Use
  Company Number: FR-ELI_LILLY_AND_COMPANY-FR201803012806

PATIENT
  Age: 4 Year
  Sex: Male
  Weight: 13.5 kg

DRUGS (8)
  1. UMATROPE 6MG [Suspect]
     Active Substance: SOMATROPIN
     Indication: GROWTH RETARDATION
  2. MELATONIN [Concomitant]
     Active Substance: MELATONIN
     Dosage: 5 MG, EACH EVENING
     Route: 065
     Dates: start: 201709
  3. UMATROPE 6MG [Suspect]
     Active Substance: SOMATROPIN
     Indication: FOETAL GROWTH RESTRICTION
     Dosage: 0.5 MG, DAILY
     Route: 058
     Dates: start: 201802, end: 20180514
  4. VENTOLINE                          /00139501/ [Concomitant]
     Active Substance: ALBUTEROL
     Indication: PRODUCT USED FOR UNKNOWN INDICATION
     Dosage: UNK UNK, OTHER (ON NEED)
     Route: 065
  5. UMATROPE 6MG [Suspect]
     Active Substance: SOMATROPIN
     Indication: BECKWITH-WIEDEMANN SYNDROME
     Dosage: 0.45 MG, DAILY
     Route: 058
     Dates: start: 20180514
  6. MELATONIN [Concomitant]
     Active Substance: MELATONIN
     Indication: PRODUCT USED FOR UNKNOWN INDICATION
     Dosage: 1 MG, DAILY
     Route: 065
     Dates: start: 201709
  7. PULMICORT TURBUHALER [Concomitant]
     Active Substance: BUDESONIDE
     Indication: PRODUCT USED FOR UNKNOWN INDICATION
     Dosage: UNK UNK, OTHER (WHEN ASTHMA CRIRIS OCCURS)
     Route: 065
  8. CELESTENE                          /00008501/ [Concomitant]
     Active Substance: BETAMETHASONE
     Indication: PRODUCT USED FOR UNKNOWN INDICATION
     Dosage: UNK UNK, DAILY
     Route: 065
     Dates: start: 201804

REACTIONS (4)
  - Diabetes insipidus [Recovered/Resolved]
  - Weight increased [Unknown]
  - Insulin-like growth factor increased [Unknown]
  - Hyperglycaemia [Unknown]

NARRATIVE: CASE EVENT DATE: 201803
